FAERS Safety Report 8407978-X (Version None)
Quarter: 2012Q2

REPORT INFORMATION
  Report Type: 
  Country: None (occurrence: None)
  Receive Date: 20120604
  Receipt Date: 20120530
  Transmission Date: 20120825
  Serious: Yes (Death, Hospitalization)
  Sender: FDA-Public Use
  Company Number: ES-JNJFOC-20120517927

PATIENT
  Sex: Male
  Weight: 104 kg

DRUGS (8)
  1. STELARA [Suspect]
     Route: 050
     Dates: start: 20120301, end: 20120404
  2. SINTROM [Concomitant]
     Indication: PRODUCT USED FOR UNKNOWN INDICATION
     Route: 065
     Dates: start: 20110301, end: 20120401
  3. CALCIUM [Concomitant]
     Indication: HIDRADENITIS
     Route: 065
  4. STELARA [Suspect]
     Indication: HIDRADENITIS
     Route: 050
     Dates: start: 20120404, end: 20120404
  5. STELARA [Suspect]
     Route: 050
     Dates: start: 20120301, end: 20120404
  6. RABEPRAZOLE SODIUM [Concomitant]
     Indication: GASTROINTESTINAL DISORDER THERAPY
  7. STELARA [Suspect]
     Indication: PYODERMA GANGRENOSUM
     Route: 050
     Dates: start: 20120404, end: 20120404
  8. PREDNISONE [Concomitant]
     Indication: HIDRADENITIS
     Route: 065

REACTIONS (2)
  - PULMONARY EMBOLISM [None]
  - OFF LABEL USE [None]
